FAERS Safety Report 8001965-1 (Version None)
Quarter: 2011Q4

REPORT INFORMATION
  Report Type: 
  Country: None (occurrence: None)
  Receive Date: 20111222
  Receipt Date: 20111214
  Transmission Date: 20120403
  Serious: Yes (Hospitalization)
  Sender: FDA-Public Use
  Company Number: FR-BAYER-2011-120936

PATIENT
  Age: 63 Year
  Sex: Female

DRUGS (1)
  1. MOXIFLOXACIN HCL [Suspect]
     Indication: PNEUMONIA
     Dosage: UNK
     Dates: start: 20080101

REACTIONS (3)
  - CARPAL TUNNEL SYNDROME [None]
  - MUSCLE RUPTURE [None]
  - ROTATOR CUFF SYNDROME [None]
